APPROVED DRUG PRODUCT: METAXALONE
Active Ingredient: METAXALONE
Strength: 640MG **Federal Register determination that product was not discontinued or withdrawn for safety or effectiveness reasons**
Dosage Form/Route: TABLET;ORAL
Application: N022503 | Product #001
Applicant: PRIMUS PHARMACEUTICALS INC
Approved: Jun 1, 2015 | RLD: Yes | RS: Yes | Type: RX

PATENTS:
Patent 11918559 | Expires: Jul 29, 2039